FAERS Safety Report 15651000 (Version 1)
Quarter: 2018Q4

REPORT INFORMATION
  Report Type: Spontaneous
  Country: FR (occurrence: FR)
  Receive Date: 20181123
  Receipt Date: 20181123
  Transmission Date: 20190205
  Serious: Yes (Hospitalization, Other)
  Sender: FDA-Public Use
  Company Number: FR-PROVELL PHARMACEUTICALS-2059223

PATIENT
  Sex: Female

DRUGS (1)
  1. EUTHYROX [Suspect]
     Active Substance: LEVOTHYROXINE SODIUM
     Indication: PRODUCT USED FOR UNKNOWN INDICATION
     Dates: start: 201703

REACTIONS (8)
  - Myalgia [None]
  - Blood pressure increased [None]
  - Insomnia [None]
  - Visual impairment [None]
  - Dyspnoea [None]
  - Alopecia [None]
  - Gastrointestinal disorder [None]
  - Thyroid function test abnormal [None]

NARRATIVE: CASE EVENT DATE: 2017
